FAERS Safety Report 13745384 (Version 1)
Quarter: 2017Q3

REPORT INFORMATION
  Report Type: Spontaneous
  Country: US (occurrence: US)
  Receive Date: 20170712
  Receipt Date: 20170712
  Transmission Date: 20171127
  Serious: Yes (Life-Threatening, Hospitalization)
  Sender: FDA-Public Use
  Company Number: PHHY2017US096648

PATIENT
  Age: 46 Year
  Sex: Male

DRUGS (11)
  1. AZTREONAM. [Suspect]
     Active Substance: AZTREONAM
     Indication: COUGH
  2. CLINDAMYCIN. [Suspect]
     Active Substance: CLINDAMYCIN
     Indication: PAIN IN EXTREMITY
     Route: 065
  3. CLINDAMYCIN. [Suspect]
     Active Substance: CLINDAMYCIN
     Indication: COUGH
  4. AZTREONAM. [Suspect]
     Active Substance: AZTREONAM
     Indication: PERIPHERAL SWELLING
  5. CEFAZOLIN [Suspect]
     Active Substance: CEFAZOLIN
     Indication: COUGH
  6. VANCOMYCIN [Suspect]
     Active Substance: VANCOMYCIN
     Indication: PAIN IN EXTREMITY
     Route: 065
  7. CLINDAMYCIN. [Suspect]
     Active Substance: CLINDAMYCIN
     Indication: PERIPHERAL SWELLING
  8. CEFAZOLIN [Suspect]
     Active Substance: CEFAZOLIN
     Indication: PAIN IN EXTREMITY
     Route: 065
  9. VANCOMYCIN [Suspect]
     Active Substance: VANCOMYCIN
     Indication: PERIPHERAL SWELLING
  10. CEFAZOLIN [Suspect]
     Active Substance: CEFAZOLIN
     Indication: PERIPHERAL SWELLING
  11. AZTREONAM. [Suspect]
     Active Substance: AZTREONAM
     Indication: PAIN IN EXTREMITY
     Route: 065

REACTIONS (7)
  - Acute generalised exanthematous pustulosis [Recovering/Resolving]
  - Rash erythematous [Recovering/Resolving]
  - Hypotension [Recovering/Resolving]
  - Respiratory distress [Recovering/Resolving]
  - Blister [Recovering/Resolving]
  - Leukocytosis [Recovering/Resolving]
  - Septic shock [Recovering/Resolving]
